FAERS Safety Report 8915501 (Version 1)
Quarter: 2012Q4

REPORT INFORMATION
  Report Type: 
  Country: US (occurrence: US)
  Receive Date: 20121119
  Receipt Date: 20121119
  Transmission Date: 20130627
  Serious: Yes (Other)
  Sender: FDA-Public Use
  Company Number: US-PFIZER INC-2012285319

PATIENT
  Age: 73 Year
  Sex: Female

DRUGS (1)
  1. REVATIO [Suspect]
     Indication: RAYNAUD^S DISEASE
     Dosage: 20 mg, 3x/day
     Dates: end: 20120928

REACTIONS (6)
  - Dyspnoea [Recovered/Resolved]
  - Gait disturbance [Recovered/Resolved]
  - Oxygen saturation abnormal [Recovered/Resolved]
  - Dyspnoea exertional [Unknown]
  - Fatigue [Recovered/Resolved]
  - Off label use [Recovered/Resolved]
